FAERS Safety Report 15868183 (Version 1)
Quarter: 2019Q1

REPORT INFORMATION
  Report Type: Spontaneous
  Country: US (occurrence: US)
  Receive Date: 20190125
  Receipt Date: 20190125
  Transmission Date: 20190417
  Serious: Yes (Disabling)
  Sender: FDA-Public Use
  Company Number: None

PATIENT
  Age: 70 Year
  Sex: Female
  Weight: 67.5 kg

DRUGS (2)
  1. ATOVAQUONE-PROGUANIL [Suspect]
     Active Substance: ATOVAQUONE\PROGUANIL HYDROCHLORIDE
     Indication: MALARIA PROPHYLAXIS
     Dosage: ?          QUANTITY:1 CAPSULE(S);?
     Route: 048
     Dates: start: 20190110, end: 20190125
  2. OMEGA 3 FISH OIL WITH VITAMIN D [Concomitant]

REACTIONS (4)
  - Dizziness [None]
  - Cough [None]
  - Rhinorrhoea [None]
  - Insomnia [None]

NARRATIVE: CASE EVENT DATE: 20190114
